FAERS Safety Report 11363623 (Version 2)
Quarter: 2015Q3

REPORT INFORMATION
  Report Type: Report from Study
  Country: DE (occurrence: DE)
  Receive Date: 20150811
  Receipt Date: 20150812
  Transmission Date: 20151125
  Serious: Yes (Death)
  Sender: FDA-Public Use
  Company Number: DE-BEH-2015052986

PATIENT
  Age: 74 Year
  Sex: Male
  Weight: 73 kg

DRUGS (16)
  1. PRIVIGEN [Suspect]
     Active Substance: HUMAN IMMUNOGLOBULIN G
     Indication: SECONDARY IMMUNODEFICIENCY
     Route: 042
     Dates: start: 20150417, end: 20150417
  2. BELOC ZOK [Concomitant]
     Active Substance: METOPROLOL SUCCINATE
  3. IODIDE [Concomitant]
  4. PANTOPRAZOLE [Concomitant]
     Active Substance: PANTOPRAZOLE SODIUM
  5. CIPROFLOXACIN. [Concomitant]
     Active Substance: CIPROFLOXACIN
  6. PRIVIGEN [Suspect]
     Active Substance: HUMAN IMMUNOGLOBULIN G
     Route: 042
     Dates: start: 20150320, end: 20150320
  7. MARCUMAR [Concomitant]
     Active Substance: PHENPROCOUMON
  8. TAMSULOSIN [Concomitant]
     Active Substance: TAMSULOSIN
  9. FENTANYL. [Concomitant]
     Active Substance: FENTANYL
  10. PREDNISOLONE. [Concomitant]
     Active Substance: PREDNISOLONE
  11. SULTAMICILLIN [Concomitant]
     Active Substance: SULTAMICILLIN
  12. HCT [Concomitant]
     Active Substance: HYDROCHLOROTHIAZIDE
  13. VANCOMYCIN ENTEROCA [Concomitant]
  14. NOVALGIN [Concomitant]
     Active Substance: METAMIZOLE SODIUM
  15. METRONIDAZOL [Concomitant]
     Active Substance: METRONIDAZOLE
  16. ALLOPURINOL. [Concomitant]
     Active Substance: ALLOPURINOL

REACTIONS (1)
  - Completed suicide [Fatal]
